FAERS Safety Report 20682123 (Version 1)
Quarter: 2022Q2

REPORT INFORMATION
  Report Type: Spontaneous
  Country: DE (occurrence: DE)
  Receive Date: 20220407
  Receipt Date: 20220407
  Transmission Date: 20220721
  Serious: Yes (Other)
  Sender: FDA-Public Use
  Company Number: DE-CADRBFARM-2022287397

PATIENT
  Age: 19 Year
  Sex: Female
  Weight: 102 kg

DRUGS (1)
  1. RAMIPRIL [Suspect]
     Active Substance: RAMIPRIL
     Indication: Hypertension
     Dosage: UNK (5MG / 10MG)
     Route: 048
     Dates: start: 2012, end: 2020

REACTIONS (4)
  - Oropharyngeal blistering [Recovered/Resolved]
  - Abdominal pain upper [Recovering/Resolving]
  - Diarrhoea [Recovering/Resolving]
  - Gastritis [Recovering/Resolving]

NARRATIVE: CASE EVENT DATE: 20130101
